FAERS Safety Report 11160068 (Version 4)
Quarter: 2015Q3

REPORT INFORMATION
  Report Type: Report from Study
  Country: US (occurrence: US)
  Receive Date: 20150603
  Receipt Date: 20150806
  Transmission Date: 20151125
  Serious: Yes (Death, Hospitalization)
  Sender: FDA-Public Use
  Company Number: US-EISAI MEDICAL RESEARCH-EC-2015-007280

PATIENT
  Age: 46 Year
  Sex: Female
  Weight: 58.9 kg

DRUGS (8)
  1. VITAMIN C [Concomitant]
     Active Substance: ASCORBIC ACID
  2. XGEVA [Concomitant]
     Active Substance: DENOSUMAB
  3. AMLODIPINE [Concomitant]
     Active Substance: AMLODIPINE BESYLATE
  4. VICODIN [Concomitant]
     Active Substance: ACETAMINOPHEN\HYDROCODONE BITARTRATE
  5. LENVIMA [Suspect]
     Active Substance: LENVATINIB
     Indication: THYROID CANCER
     Route: 048
     Dates: start: 20150415, end: 20150622
  6. LENVIMA [Suspect]
     Active Substance: LENVATINIB
     Route: 048
     Dates: start: 20150630, end: 201507
  7. LEVOTHYROXINE. [Concomitant]
     Active Substance: LEVOTHYROXINE
  8. CALCIUM + D [Concomitant]
     Active Substance: CALCIUM\VITAMIN D

REACTIONS (11)
  - Blood pressure increased [Unknown]
  - Weight decreased [Unknown]
  - Urinary tract infection [Unknown]
  - Dehydration [Recovered/Resolved]
  - Decreased appetite [Unknown]
  - Dyspnoea [Unknown]
  - Back pain [Unknown]
  - Urinary retention [Unknown]
  - Vomiting [Recovered/Resolved]
  - Malignant neoplasm progression [Fatal]
  - Hypotension [Unknown]

NARRATIVE: CASE EVENT DATE: 2015
